FAERS Safety Report 9857093 (Version 2)
Quarter: 2014Q1

REPORT INFORMATION
  Report Type: Report from Study
  Country: DE (occurrence: DE)
  Receive Date: 20140130
  Receipt Date: 20140227
  Transmission Date: 20141002
  Serious: Yes (Other)
  Sender: FDA-Public Use
  Company Number: DE-ELI_LILLY_AND_COMPANY-DE201401006100

PATIENT
  Age: 11 Year
  Sex: Female
  Weight: 24.5 kg

DRUGS (2)
  1. SOMATROPIN [Suspect]
     Indication: GROWTH HORMONE DEFICIENCY
     Dosage: 0.8 MG, QD
     Route: 065
     Dates: start: 20121121
  2. SOMATROPIN [Suspect]
     Dosage: 1.6 MG, QD
     Route: 065
     Dates: start: 20131014, end: 20140102

REACTIONS (3)
  - Insulin-like growth factor increased [Recovering/Resolving]
  - Accidental overdose [Recovering/Resolving]
  - Insulin-like growth factor increased [Unknown]
